FAERS Safety Report 6541038-8 (Version None)
Quarter: 2010Q1

REPORT INFORMATION
  Report Type: 
  Country: None (occurrence: None)
  Receive Date: 20100118
  Receipt Date: 20100112
  Transmission Date: 20100710
  Serious: Yes (Death, Life-Threatening, Hospitalization, Disabling, Other)
  Sender: FDA-Public Use
  Company Number: GB-ELI_LILLY_AND_COMPANY-GB200712003802

PATIENT
  Age: 73 Year
  Sex: Male
  Weight: 61.7 kg

DRUGS (8)
  1. ALIMTA [Suspect]
     Indication: NON-SMALL CELL LUNG CANCER
     Dosage: 500 MG/M2, ONCE EVERY 21 DAYS
     Route: 042
     Dates: start: 20071001
  2. FOLIC ACID [Concomitant]
     Dosage: 400 UG, UNKNOWN
     Route: 048
     Dates: start: 20071001
  3. BISACODYL [Concomitant]
     Dosage: 1 D/F, AS NEEDED
     Route: 048
  4. CYCLIZINE [Concomitant]
     Dosage: 100 MG, UNKNOWN
     Route: 048
  5. DEXAMETHASONE [Concomitant]
     Dosage: 2 MG, UNKNOWN
     Route: 048
  6. OMEPRAZOLE [Concomitant]
     Dosage: 20 MG, UNKNOWN
     Route: 048
  7. ORAMORPH SR [Concomitant]
     Dosage: 10 MG, AS NEEDED
     Route: 048
  8. INFUMORPH [Concomitant]
     Dosage: 40 MG, UNKNOWN
     Route: 048

REACTIONS (1)
  - PNEUMONITIS [None]
